FAERS Safety Report 8992108 (Version 1)
Quarter: 2012Q4

REPORT INFORMATION
  Report Type: 
  Country: GB (occurrence: GB)
  Receive Date: 20121231
  Receipt Date: 20121231
  Transmission Date: 20130627
  Serious: Yes (Life-Threatening, Other)
  Sender: FDA-Public Use
  Company Number: GB-009507513-1212GBR009608

PATIENT
  Age: 84 Year
  Sex: Male
  Weight: 58 kg

DRUGS (15)
  1. JANUVIA [Suspect]
     Indication: TYPE 2 DIABETES MELLITUS
     Dosage: UNK
     Route: 048
     Dates: start: 20110609, end: 20121206
  2. ADCAL (CALCIUM CARBONATE) [Concomitant]
     Dosage: UNK
     Dates: start: 20120728, end: 20121031
  3. ASACOL [Concomitant]
     Dosage: UNK
     Dates: start: 20120728, end: 20121031
  4. AZATHIOPRINE [Concomitant]
     Indication: IMMUNOSUPPRESSION
     Dosage: UNK
     Dates: start: 20120728, end: 20121031
  5. ASPIRIN [Concomitant]
     Dosage: UNK
     Dates: start: 20120728, end: 20121031
  6. CARBOXYMETHYLCELLULOSE SODIUM [Concomitant]
     Dosage: UNK
     Dates: start: 20120905, end: 20121003
  7. GLICLAZIDE [Concomitant]
     Dosage: UNK
     Dates: start: 20110609
  8. KETOCONAZOLE [Concomitant]
     Dosage: UNK
     Dates: start: 20120912, end: 20120913
  9. LANSOPRAZOLE [Concomitant]
     Dosage: UNK
     Dates: start: 20120728, end: 20121031
  10. METFORMIN [Concomitant]
     Dosage: UNK
     Dates: start: 20120609
  11. REGULAR INSULIN NOVO NORDISK [Concomitant]
     Dosage: UNK
     Dates: start: 20120905, end: 20121003
  12. PRAVASTATIN SODIUM [Concomitant]
     Dosage: UNK
     Dates: start: 20120728, end: 20121031
  13. RAMIPRIL [Concomitant]
     Dosage: UNK
     Dates: start: 20120728, end: 20121031
  14. TIMOPTOL EYE DROPS SOLUTION [Concomitant]
     Dosage: UNK
     Dates: start: 20120905, end: 20121003
  15. DIGOXIN [Concomitant]
     Dosage: UNK
     Dates: start: 20120728, end: 20121031

REACTIONS (1)
  - Pancreatic carcinoma [Not Recovered/Not Resolved]
